FAERS Safety Report 24348715 (Version 1)
Quarter: 2024Q3

REPORT INFORMATION
  Report Type: Spontaneous
  Country: IT (occurrence: IT)
  Receive Date: 20240923
  Receipt Date: 20240923
  Transmission Date: 20241017
  Serious: Yes (Other)
  Sender: AUROBINDO
  Company Number: IT-AUROBINDO-AUR-APL-2024-045199

PATIENT
  Age: 11 Year
  Sex: Male

DRUGS (7)
  1. AMIODARONE [Suspect]
     Active Substance: AMIODARONE
     Indication: Arrhythmia
     Dosage: 150 MG/M2, ONCE A DAY
     Route: 048
  2. FLECAINIDE [Concomitant]
     Active Substance: FLECAINIDE
     Indication: Atrial flutter
     Dosage: 2 MILLIGRAM/KILOGRAM
     Route: 042
  3. Immunoglobulin [Concomitant]
     Indication: COVID-19
     Dosage: UNK
     Route: 065
  4. ADENOSINE [Concomitant]
     Active Substance: ADENOSINE
     Indication: Supraventricular tachycardia
     Dosage: 0.1 MILLIGRAM/KILOGRAM
     Route: 065
  5. ADENOSINE [Concomitant]
     Active Substance: ADENOSINE
     Dosage: 0.2 MILLIGRAM/KILOGRAM
     Route: 065
  6. AMIODARONE [Concomitant]
     Active Substance: AMIODARONE
     Indication: Product used for unknown indication
     Dosage: 300 MG/M2, ONCE A DAY
     Route: 042
  7. PROPRANOLOL [Concomitant]
     Active Substance: PROPRANOLOL HYDROCHLORIDE
     Indication: Heart rate
     Dosage: 1 MILLIGRAM/KILOGRAM, ONCE A DAY
     Route: 065

REACTIONS (1)
  - Drug ineffective [Unknown]
